FAERS Safety Report 7156065-X (Version None)
Quarter: 2010Q4

REPORT INFORMATION
  Report Type: 
  Country: None (occurrence: None)
  Receive Date: 20101214
  Receipt Date: 20101208
  Transmission Date: 20110411
  Serious: Yes (Life-Threatening, Hospitalization)
  Sender: FDA-Public Use
  Company Number: JP-CELGENEUS-087-21880-10120756

PATIENT
  Sex: Male

DRUGS (11)
  1. REVLIMID [Suspect]
     Indication: MULTIPLE MYELOMA
     Route: 048
     Dates: start: 20100918, end: 20100921
  2. LENADEX [Suspect]
     Indication: MULTIPLE MYELOMA
     Route: 048
     Dates: start: 20100918, end: 20100921
  3. ASPIRIN [Concomitant]
     Indication: PROPHYLAXIS
     Route: 048
     Dates: start: 20100918, end: 20100929
  4. KALIMATE [Concomitant]
     Indication: RENAL DISORDER
     Route: 048
     Dates: start: 20100918, end: 20100929
  5. CELECOXIB [Concomitant]
     Indication: MULTIPLE MYELOMA
     Route: 048
     Dates: start: 20100918, end: 20100929
  6. ZOVIRAX [Concomitant]
     Indication: PROPHYLAXIS
     Route: 048
     Dates: start: 20100918, end: 20100929
  7. TAKEPRON [Concomitant]
     Indication: MULTIPLE MYELOMA
     Route: 048
     Dates: start: 20100918, end: 20100929
  8. ZYLORIC [Concomitant]
     Indication: HYPERTENSION
     Route: 048
     Dates: start: 20100918, end: 20100929
  9. LUPRAC [Concomitant]
     Indication: RENAL DISORDER
     Route: 048
     Dates: start: 20100918, end: 20100929
  10. MUCOSTA [Concomitant]
     Indication: MULTIPLE MYELOMA
     Route: 048
     Dates: start: 20100918, end: 20100929
  11. LECTISOL [Concomitant]
     Route: 065
     Dates: start: 20100918, end: 20100929

REACTIONS (3)
  - DIARRHOEA [None]
  - MELAENA [None]
  - PLATELET COUNT DECREASED [None]
